FAERS Safety Report 13948981 (Version 1)
Quarter: 2017Q3

REPORT INFORMATION
  Report Type: Spontaneous
  Country: US (occurrence: US)
  Receive Date: 20170908
  Receipt Date: 20170908
  Transmission Date: 20171128
  Serious: No
  Sender: FDA-Public Use
  Company Number: US-BRISTOL-MYERS SQUIBB COMPANY-BMS-2017-080844

PATIENT
  Age: 71 Year
  Sex: Female
  Weight: 92.7 kg

DRUGS (1)
  1. YERVOY [Suspect]
     Active Substance: IPILIMUMAB
     Indication: MALIGNANT MELANOMA
     Route: 042
     Dates: start: 201611

REACTIONS (3)
  - Neuralgia [Unknown]
  - Plantar fasciitis [Unknown]
  - Fatigue [Unknown]

NARRATIVE: CASE EVENT DATE: 201702
